FAERS Safety Report 20783563 (Version 1)
Quarter: 2022Q2

REPORT INFORMATION
  Report Type: Spontaneous
  Country: US (occurrence: US)
  Receive Date: 20220504
  Receipt Date: 20220504
  Transmission Date: 20220720
  Serious: Yes (Death, Other)
  Sender: FDA-Public Use
  Company Number: US-RECORDATI RARE DISEASE INC.-2022001647

PATIENT
  Age: 18 Year
  Sex: Female

DRUGS (2)
  1. HEMIN [Suspect]
     Active Substance: HEMIN
     Indication: Porphyria acute
     Dosage: 350 MILLIGRAM, TWO WEEK COURSE, EIGHT INFUSIONS
     Route: 042
  2. DEXTROSE [Suspect]
     Active Substance: DEXTROSE
     Indication: Porphyria acute
     Dosage: 50 ML/HR
     Route: 065

REACTIONS (7)
  - Septic shock [Fatal]
  - Porphyria [Unknown]
  - Bacteraemia [Unknown]
  - Sepsis [Unknown]
  - Acute respiratory failure [Unknown]
  - Cardiac arrest [Unknown]
  - Drug ineffective [Unknown]
